FAERS Safety Report 7597462-8 (Version None)
Quarter: 2011Q3

REPORT INFORMATION
  Report Type: 
  Country: None (occurrence: None)
  Receive Date: 20110708
  Receipt Date: 20110630
  Transmission Date: 20111222
  Serious: Yes (Hospitalization)
  Sender: FDA-Public Use
  Company Number: US-US-EMD SERONO, INC.-7049314

PATIENT
  Sex: Female

DRUGS (27)
  1. REBIF [Suspect]
     Indication: MULTIPLE SCLEROSIS
     Route: 058
     Dates: start: 20110113
  2. COUMADIN [Concomitant]
  3. FLEXERIL [Concomitant]
  4. MULTI-VITAMIN [Concomitant]
  5. PROAIR HFA [Concomitant]
  6. METOPROLOL TARTRATE [Concomitant]
     Route: 048
  7. VALIUM [Concomitant]
     Route: 048
  8. POTASSIUM CHLORIDE [Concomitant]
  9. BACLOFEN [Concomitant]
     Route: 048
  10. PERCOCET [Concomitant]
     Route: 048
  11. LISINOPRIL [Concomitant]
     Route: 048
  12. PREVACID [Concomitant]
     Route: 048
  13. MECLIZINE [Concomitant]
     Route: 048
  14. MAGNESIUM [Concomitant]
  15. VITAMIN B-12 [Concomitant]
  16. LOVENOX [Concomitant]
  17. BLOOD THINNERS [Concomitant]
     Indication: ANTICOAGULANT THERAPY
  18. CALCIUM CARBONATE [Concomitant]
  19. AMRIX [Concomitant]
  20. CRESTOR [Concomitant]
     Route: 048
  21. TOPAMAX [Concomitant]
     Route: 048
  22. VITAMIN D [Concomitant]
  23. FLOVENT [Concomitant]
  24. ACIPHEX [Concomitant]
     Route: 048
  25. TRILEPTAL [Concomitant]
  26. PROMETHAZINE [Concomitant]
  27. LASIX [Concomitant]
     Route: 048

REACTIONS (7)
  - INJECTION SITE HAEMATOMA [None]
  - INAPPROPRIATE SCHEDULE OF DRUG ADMINISTRATION [None]
  - CEREBRAL THROMBOSIS [None]
  - INJECTION SITE PAIN [None]
  - MULTIPLE SCLEROSIS RELAPSE [None]
  - BLOOD THYROID STIMULATING HORMONE DECREASED [None]
  - INTERNATIONAL NORMALISED RATIO INCREASED [None]
